FAERS Safety Report 11382645 (Version 1)
Quarter: 2015Q3

REPORT INFORMATION
  Report Type: Spontaneous
  Country: US (occurrence: US)
  Receive Date: 20150811
  Receipt Date: 20150811
  Transmission Date: 20151125
  Serious: No
  Sender: FDA-Public Use
  Company Number: US-ELI_LILLY_AND_COMPANY-US201007006342

PATIENT
  Age: 71 Year
  Sex: Male

DRUGS (7)
  1. ADCIRCA [Suspect]
     Active Substance: TADALAFIL
     Indication: PULMONARY ARTERIAL HYPERTENSION
     Dosage: 1 D/F, UNKNOWN
     Route: 065
     Dates: start: 20100622
  2. REMODULIN [Concomitant]
     Active Substance: TREPROSTINIL
     Dosage: UNK, UNK
  3. COUMADIN [Concomitant]
     Active Substance: WARFARIN SODIUM
  4. LASIX [Concomitant]
     Active Substance: FUROSEMIDE
  5. DIGOXIN. [Concomitant]
     Active Substance: DIGOXIN
  6. RAMIPRIL. [Concomitant]
     Active Substance: RAMIPRIL
  7. AMBRISENTAN [Concomitant]
     Active Substance: AMBRISENTAN
     Dosage: 5 MG, UNKNOWN
     Route: 048
     Dates: start: 20100501, end: 20100622

REACTIONS (2)
  - Fluid overload [Unknown]
  - Oedema [Unknown]
